FAERS Safety Report 12542160 (Version 1)
Quarter: 2016Q3

REPORT INFORMATION
  Report Type: Report from Study
  Country: US (occurrence: US)
  Receive Date: 20160708
  Receipt Date: 20160708
  Transmission Date: 20161109
  Serious: No
  Sender: FDA-Public Use
  Company Number: US-009507513-1606USA012749

PATIENT

DRUGS (2)
  1. JANUVIA [Suspect]
     Active Substance: SITAGLIPTIN PHOSPHATE
     Dosage: CUTS MEDICATION IN TO LOWER DOSAGE AMOUNT TO 50MG TO EXPERIENCE LESS SIDE EFFECTS
     Route: 048
  2. JANUVIA [Suspect]
     Active Substance: SITAGLIPTIN PHOSPHATE
     Dosage: 100 MG, UNK
     Route: 048

REACTIONS (4)
  - Adverse event [Unknown]
  - Weight decreased [Unknown]
  - Confusional state [Unknown]
  - Intentional product misuse [Unknown]
